FAERS Safety Report 7817096-7 (Version None)
Quarter: 2011Q4

REPORT INFORMATION
  Report Type: 
  Country: None (occurrence: None)
  Receive Date: 20111017
  Receipt Date: 20111003
  Transmission Date: 20120403
  Serious: Yes (Hospitalization)
  Sender: FDA-Public Use
  Company Number: FR-KINGPHARMUSA00001-K201101166

PATIENT
  Age: 74 Year
  Sex: Male

DRUGS (6)
  1. CARVEDILOL [Concomitant]
     Dosage: 50 MG, QD
     Route: 048
  2. ALDACTONE [Suspect]
     Indication: HYPERTENSION
     Dosage: 1 DF, QD
     Route: 048
     Dates: start: 20070101, end: 20110527
  3. COUMADIN [Concomitant]
     Indication: ATRIAL FIBRILLATION
     Dosage: 5 MG, UNK
     Route: 048
  4. ALTACE [Suspect]
     Indication: HYPERTENSION
     Dosage: 2.5 MG, QD
     Route: 048
     Dates: start: 20070101, end: 20110527
  5. LASIX [Suspect]
     Indication: HYPERTENSION
     Dosage: 1 DF, QD
     Route: 048
     Dates: start: 20070101, end: 20110527
  6. DRONEDARONE HCL [Concomitant]
     Dosage: 800 MG, UNK
     Route: 048

REACTIONS (2)
  - HAEMATURIA [None]
  - RENAL FAILURE ACUTE [None]
